FAERS Safety Report 9549226 (Version 1)
Quarter: 2013Q3

REPORT INFORMATION
  Report Type: Spontaneous
  Country: IT (occurrence: IT)
  Receive Date: 20130924
  Receipt Date: 20130924
  Transmission Date: 20140515
  Serious: Yes (Other)
  Sender: FDA-Public Use
  Company Number: IT-TEVA-433001ISR

PATIENT
  Age: 55 Year
  Sex: Male
  Weight: 64 kg

DRUGS (7)
  1. FLUOROURACILE TEVA [Suspect]
     Indication: COLON CANCER
     Dosage: 522 MILLIGRAM DAILY; 522MG, CYCLICAL
     Route: 040
     Dates: start: 20130212, end: 20130312
  2. FLUOROURACILE TEVA [Suspect]
     Dosage: 783MG, CYCLICAL
     Route: 042
     Dates: start: 20130212, end: 20130312
  3. OXALIPLATINO TEVA [Suspect]
     Indication: COLON CANCER
     Dosage: 110.9MG, CYCLICAL
     Route: 042
     Dates: start: 20130212, end: 20130312
  4. SOLDESAM [Concomitant]
     Indication: PROPHYLAXIS OF NAUSEA AND VOMITING
     Dosage: 8 MILLIGRAM DAILY;
     Route: 042
     Dates: start: 20130212, end: 20130312
  5. RANIDIL [Concomitant]
     Dosage: 50 MILLIGRAM DAILY;
     Route: 042
     Dates: start: 20130212, end: 20130312
  6. ONDANSETRONE HIKMA [Concomitant]
     Indication: PROPHYLAXIS OF NAUSEA AND VOMITING
     Dosage: 8 MILLIGRAM DAILY;
     Route: 042
     Dates: start: 20130212, end: 20130312
  7. LEVOFOLENE [Concomitant]
     Dosage: 130.5 MILLIGRAM DAILY;
     Route: 042
     Dates: start: 20130212, end: 20130312

REACTIONS (5)
  - Diarrhoea [Unknown]
  - Dry skin [Unknown]
  - Formication [Unknown]
  - Pain in extremity [Unknown]
  - Headache [Unknown]
